FAERS Safety Report 4836430-3 (Version None)
Quarter: 2005Q4

REPORT INFORMATION
  Report Type: 
  Country: None (occurrence: None)
  Receive Date: 20051123
  Receipt Date: 20050113
  Transmission Date: 20060501
  Serious: Yes (Hospitalization, Other)
  Sender: FDA-Public Use
  Company Number: PHEH2005US00965

PATIENT
  Age: 27 Year
  Sex: Female
  Weight: 98.185 kg

DRUGS (14)
  1. TRILEPTAL [Suspect]
     Indication: DISSOCIATIVE IDENTITY DISORDER
     Dosage: 75 MG, QD
     Route: 048
     Dates: start: 20040818
  2. TRILEPTAL [Suspect]
     Dosage: 150 MG, BID
     Route: 048
     Dates: start: 20040915
  3. TRILEPTAL [Suspect]
     Dosage: 750 MG, QD
     Route: 048
     Dates: start: 20041006
  4. TRILEPTAL [Suspect]
     Dosage: 600 MG, QD
     Route: 048
     Dates: start: 20041027
  5. TRILEPTAL [Suspect]
     Dosage: 450 MG, QD
     Route: 048
     Dates: start: 20041101
  6. TRILEPTAL [Suspect]
     Dosage: 150 MG, BID
     Route: 048
     Dates: start: 20050103
  7. TRILEPTAL [Suspect]
     Dosage: 225 MG, QD
     Route: 048
     Dates: start: 20050112, end: 20050117
  8. PROZAC [Suspect]
     Dosage: 20 MG, QD
     Route: 048
     Dates: start: 20040601
  9. PROZAC [Suspect]
     Dosage: 40 MG, QD
     Route: 048
  10. PROZAC [Suspect]
     Dosage: 60 MG, QD
     Route: 048
  11. PROZAC [Suspect]
     Dosage: 35 MG, QD
     Route: 048
  12. AMBIEN [Suspect]
     Dosage: 5 UNK, UNK
     Dates: start: 20040801
  13. AMBIEN [Suspect]
     Dosage: 10 UNK, UNK
  14. ATIVAN [Concomitant]
     Dosage: UNK, PRN

REACTIONS (6)
  - BLOOD PROLACTIN INCREASED [None]
  - CAESAREAN SECTION [None]
  - CONDITION AGGRAVATED [None]
  - DRUG EXPOSURE DURING PREGNANCY [None]
  - DRUG INEFFECTIVE [None]
  - TREMOR [None]
